FAERS Safety Report 9944127 (Version 1)
Quarter: 2014Q1

REPORT INFORMATION
  Report Type: Report from Study
  Country: US (occurrence: US)
  Receive Date: 20140303
  Receipt Date: 20140303
  Transmission Date: 20141002
  Serious: No
  Sender: FDA-Public Use
  Company Number: US-ABBVIE-13P-163-1055789-00

PATIENT
  Age: 36 Year
  Sex: Female

DRUGS (3)
  1. HUMIRA [Suspect]
     Indication: RHEUMATOID ARTHRITIS
     Dates: start: 20130126
  2. ADVAIR INHALER [Concomitant]
     Indication: ASTHMA
     Dosage: 250/50 DAILY
     Route: 055
  3. LOESTRIN [Concomitant]
     Indication: CONTRACEPTION
     Dosage: 1 PILL DAILY

REACTIONS (3)
  - Injection site reaction [Not Recovered/Not Resolved]
  - Injection site reaction [Not Recovered/Not Resolved]
  - Injection site reaction [Not Recovered/Not Resolved]
